FAERS Safety Report 23863459 (Version 2)
Quarter: 2024Q2

REPORT INFORMATION
  Report Type: Spontaneous
  Country: BR (occurrence: BR)
  Receive Date: 20240516
  Receipt Date: 20240528
  Transmission Date: 20240716
  Serious: Yes (Hospitalization)
  Sender: FDA-Public Use
  Company Number: BR-JNJFOC-20240532109

PATIENT
  Sex: Male

DRUGS (7)
  1. INVEGA SUSTENNA [Suspect]
     Active Substance: PALIPERIDONE PALMITATE
     Indication: Product used for unknown indication
     Route: 030
  2. INVEGA SUSTENNA [Suspect]
     Active Substance: PALIPERIDONE PALMITATE
  3. INVEGA SUSTENNA [Suspect]
     Active Substance: PALIPERIDONE PALMITATE
  4. TRILEPTAL [Concomitant]
     Active Substance: OXCARBAZEPINE
  5. LITHIUM CARBONATE [Concomitant]
     Active Substance: LITHIUM CARBONATE
  6. LITHIUM CARBONATE [Concomitant]
     Active Substance: LITHIUM CARBONATE
  7. LEVOMEPROMAZINE [Concomitant]
     Active Substance: LEVOMEPROMAZINE

REACTIONS (2)
  - Hospitalisation [Recovered/Resolved]
  - Hypersomnia [Unknown]

NARRATIVE: CASE EVENT DATE: 20240120
